FAERS Safety Report 17264348 (Version 1)
Quarter: 2020Q1

REPORT INFORMATION
  Report Type: Spontaneous
  Country: US (occurrence: US)
  Receive Date: 20200113
  Receipt Date: 20200113
  Transmission Date: 20200409
  Serious: No
  Sender: FDA-Public Use
  Company Number: NVSC2020US006225

PATIENT

DRUGS (3)
  1. LETROZOLE. [Suspect]
     Active Substance: LETROZOLE
     Indication: PRODUCT USED FOR UNKNOWN INDICATION
     Dosage: UNK
     Route: 065
  2. IBRANCE [Suspect]
     Active Substance: PALBOCICLIB
     Indication: BREAST CANCER
     Dosage: 125 MG (ONLY 2 WEEKS ON IBRANCE 125 MG IN THE PREVIOUS CYCLE (DEC 2019) THEN MD PLACED ON HOLD)
     Route: 048
     Dates: start: 20191122, end: 201912
  3. IBRANCE [Suspect]
     Active Substance: PALBOCICLIB
     Dosage: 100 MG, QD (FOR 21 DAYS ON AND 7 DAYS OFF)
     Route: 065
     Dates: start: 20200105

REACTIONS (3)
  - Diarrhoea [Unknown]
  - Fatigue [Recovering/Resolving]
  - Constipation [Unknown]
